FAERS Safety Report 17683161 (Version 1)
Quarter: 2020Q2

REPORT INFORMATION
  Report Type: Spontaneous
  Country: DE (occurrence: DE)
  Receive Date: 20200420
  Receipt Date: 20200420
  Transmission Date: 20200714
  Serious: Yes (Hospitalization)
  Sender: FDA-Public Use
  Company Number: DE-HIKMA PHARMACEUTICALS USA INC.-DE-H14001-20-51141

PATIENT
  Age: 80 Year
  Sex: Male

DRUGS (12)
  1. ACETYLSALICYLSAEURE [Concomitant]
     Active Substance: ASPIRIN
     Indication: PRODUCT USED FOR UNKNOWN INDICATION
     Route: 065
  2. PANTOPRAZOL [Concomitant]
     Active Substance: PANTOPRAZOLE SODIUM
     Indication: PRODUCT USED FOR UNKNOWN INDICATION
     Route: 065
  3. METOCLOPRAMIDE. [Concomitant]
     Active Substance: METOCLOPRAMIDE
     Indication: PRODUCT USED FOR UNKNOWN INDICATION
     Route: 065
  4. ALLOPURINOL. [Concomitant]
     Active Substance: ALLOPURINOL
     Indication: PRODUCT USED FOR UNKNOWN INDICATION
     Route: 048
  5. PACLITAXEL. [Suspect]
     Active Substance: PACLITAXEL
     Indication: PRODUCT USED FOR UNKNOWN INDICATION
     Route: 065
  6. ONDANSETRON [Concomitant]
     Active Substance: ONDANSETRON
     Indication: PRODUCT USED FOR UNKNOWN INDICATION
     Route: 065
  7. METOPROLOL. [Concomitant]
     Active Substance: METOPROLOL
     Indication: PRODUCT USED FOR UNKNOWN INDICATION
     Route: 065
  8. AMLODIPINE [Concomitant]
     Active Substance: AMLODIPINE BESYLATE
     Indication: PRODUCT USED FOR UNKNOWN INDICATION
     Route: 065
  9. CARBOPLATIN. [Suspect]
     Active Substance: CARBOPLATIN
     Indication: PRODUCT USED FOR UNKNOWN INDICATION
     Route: 065
  10. SPIRIVA [Concomitant]
     Active Substance: TIOTROPIUM BROMIDE MONOHYDRATE
     Indication: PRODUCT USED FOR UNKNOWN INDICATION
     Route: 065
  11. TORASEMID [Concomitant]
     Active Substance: TORSEMIDE
     Indication: PRODUCT USED FOR UNKNOWN INDICATION
     Route: 065
  12. RAMIPRIL. [Concomitant]
     Active Substance: RAMIPRIL
     Indication: PRODUCT USED FOR UNKNOWN INDICATION
     Route: 065

REACTIONS (4)
  - Dyspnoea [Unknown]
  - General physical health deterioration [Unknown]
  - Dizziness [Unknown]
  - Decreased appetite [Unknown]
